FAERS Safety Report 11705378 (Version 1)
Quarter: 2015Q4

REPORT INFORMATION
  Report Type: Spontaneous
  Country: GB (occurrence: GB)
  Receive Date: 20151106
  Receipt Date: 20151106
  Transmission Date: 20160304
  Serious: Yes (Other)
  Sender: FDA-Public Use
  Company Number: PHHY2015GB090707

PATIENT
  Age: 46 Year
  Sex: Male

DRUGS (11)
  1. DIHYDROERGOTAMINE [Suspect]
     Active Substance: DIHYDROERGOTAMINE
     Dosage: 0.75 MG, (IN 250 ML OF NORMAL SALINE OVER ONE HOUR)
     Route: 042
  2. METHYSERGIDE MALEATE [Suspect]
     Active Substance: METHYSERGIDE MALEATE
     Indication: HEADACHE
     Route: 065
  3. LITHIUM. [Suspect]
     Active Substance: LITHIUM
     Indication: HEADACHE
     Route: 065
  4. DOMPERIDONE [Concomitant]
     Active Substance: DOMPERIDONE
     Indication: NAUSEA
     Route: 065
  5. BACLOFEN. [Suspect]
     Active Substance: BACLOFEN
     Indication: CLUSTER HEADACHE
     Route: 065
  6. DIHYDROERGOTAMINE [Suspect]
     Active Substance: DIHYDROERGOTAMINE
     Indication: CLUSTER HEADACHE
     Dosage: 0.5 MG, (IN 100 ML OF NORMAL SALINE OVER ONE HOUR ON DAY 1)
     Route: 042
  7. VALPROIC ACID. [Suspect]
     Active Substance: VALPROIC ACID
     Indication: HEADACHE
     Route: 065
  8. DIHYDROERGOTAMINE [Suspect]
     Active Substance: DIHYDROERGOTAMINE
     Dosage: 1 MG, Q8H,(IN 250 ML OF NORMAL SALINE)
     Route: 042
  9. TOPIRAMATE. [Suspect]
     Active Substance: TOPIRAMATE
     Indication: HEADACHE
     Route: 065
  10. ONDANSETRON [Concomitant]
     Active Substance: ONDANSETRON
     Indication: NAUSEA
     Dosage: 4 MG, Q8H
     Route: 042
  11. MELATONIN [Suspect]
     Active Substance: MELATONIN
     Indication: HEADACHE
     Route: 065

REACTIONS (4)
  - Nasal congestion [Unknown]
  - Lacrimation increased [Unknown]
  - Drug ineffective [Unknown]
  - Headache [Unknown]
